FAERS Safety Report 8451770-7 (Version None)
Quarter: 2012Q2

REPORT INFORMATION
  Report Type: 
  Country: None (occurrence: None)
  Receive Date: 20120620
  Receipt Date: 20120404
  Transmission Date: 20120825
  Serious: No
  Sender: FDA-Public Use
  Company Number: US-VERTEX PHARMACEUTICALS INC.-AE-2012-003859

PATIENT
  Sex: Female
  Weight: 56.75 kg

DRUGS (7)
  1. RIBAVIRIN [Concomitant]
     Indication: HEPATITIS C
     Route: 048
     Dates: start: 20120127
  2. RIBAVIRIN [Concomitant]
     Route: 048
     Dates: start: 20120310
  3. IBUPROFEN [Concomitant]
     Indication: PAIN
  4. XANAX [Concomitant]
     Indication: SLEEP DISORDER
  5. AMBIEN [Concomitant]
     Indication: SLEEP DISORDER
  6. INCIVEK [Suspect]
     Indication: HEPATITIS C
     Route: 048
     Dates: start: 20120127
  7. PEGASYS [Concomitant]
     Indication: HEPATITIS C
     Route: 058
     Dates: start: 20120127

REACTIONS (5)
  - HAEMORRHOIDS [None]
  - GENITAL RASH [None]
  - ANAEMIA [None]
  - DIARRHOEA [None]
  - DYSURIA [None]
